FAERS Safety Report 24572526 (Version 1)
Quarter: 2024Q4

REPORT INFORMATION
  Report Type: Spontaneous
  Country: US (occurrence: None)
  Receive Date: 20241101
  Receipt Date: 20241101
  Transmission Date: 20250115
  Serious: Yes (Death)
  Sender: Public
  Company Number: None

PATIENT
  Age: 79 Year
  Sex: Female

DRUGS (8)
  1. COLLAGENASE SANTYL [Suspect]
     Active Substance: COLLAGENASE CLOSTRIDIUM HISTOLYTICUM
     Indication: Wound
     Route: 062
     Dates: start: 20241005, end: 20241031
  2. BUMETANIDE [Concomitant]
     Active Substance: BUMETANIDE
  3. HUMALOG KWIKPEN [Concomitant]
     Active Substance: INSULIN LISPRO
  4. LANTUS SOLOSTAR [Concomitant]
     Active Substance: INSULIN GLARGINE
  5. METOLAZONE [Concomitant]
     Active Substance: METOLAZONE
  6. MYCOPHENOLIC ACID [Concomitant]
     Active Substance: MYCOPHENOLIC ACID
  7. ROSUVASTATIN [Concomitant]
     Active Substance: ROSUVASTATIN
  8. TACROLIMUS [Concomitant]
     Active Substance: TACROLIMUS

REACTIONS (1)
  - Death [None]

NARRATIVE: CASE EVENT DATE: 20241031
